FAERS Safety Report 6479795-1 (Version None)
Quarter: 2009Q4

REPORT INFORMATION
  Report Type: 
  Country: None (occurrence: None)
  Receive Date: 20091202
  Receipt Date: 20091124
  Transmission Date: 20100525
  Serious: Yes (Life-Threatening, Hospitalization)
  Sender: FDA-Public Use
  Company Number: SPV1-2009-02028

PATIENT
  Age: 26 Year
  Sex: Male

DRUGS (6)
  1. FOSRENOL [Suspect]
     Indication: HYPERPHOSPHATAEMIA
     Dosage: 500 MG, ORAL; 1000 MG, ORAL; 2000 MG, ORAL
     Route: 048
     Dates: start: 20090314, end: 20090403
  2. FOSRENOL [Suspect]
     Indication: HYPERPHOSPHATAEMIA
     Dosage: 500 MG, ORAL; 1000 MG, ORAL; 2000 MG, ORAL
     Route: 048
     Dates: start: 20090404, end: 20090424
  3. FOSRENOL [Suspect]
     Indication: HYPERPHOSPHATAEMIA
     Dosage: 500 MG, ORAL; 1000 MG, ORAL; 2000 MG, ORAL
     Route: 048
     Dates: start: 20090425, end: 20090718
  4. DIOVAN [Concomitant]
  5. FERO-GRADUMET /00023503/ (FERROUS SULFATE) [Concomitant]
  6. CALTAN (CALCIUM CARBONATE) [Concomitant]

REACTIONS (10)
  - ANAEMIA MEGALOBLASTIC [None]
  - BONE MARROW FAILURE [None]
  - CEREBRAL HAEMORRHAGE [None]
  - COPPER DEFICIENCY [None]
  - HYPERTENSION [None]
  - MALAISE [None]
  - MALNUTRITION [None]
  - MYELODYSPLASTIC SYNDROME [None]
  - PANCYTOPENIA [None]
  - PAROXYSMAL NOCTURNAL HAEMOGLOBINURIA [None]
